FAERS Safety Report 4481151-2 (Version None)
Quarter: 2004Q4

REPORT INFORMATION
  Report Type: 
  Country: None (occurrence: None)
  Receive Date: 20041021
  Receipt Date: 20041014
  Transmission Date: 20050328
  Serious: Yes (Death)
  Sender: FDA-Public Use
  Company Number: GB-MERCK-0410GBR00162

PATIENT
  Age: 85 Year
  Sex: Female

DRUGS (4)
  1. VIOXX [Suspect]
     Indication: OSTEOARTHRITIS
     Route: 048
     Dates: end: 20040901
  2. ASPIRIN [Concomitant]
     Route: 065
  3. ACETAMINOPHEN [Concomitant]
     Route: 065
  4. DIETARY SUPPLEMENT (UNSPECIFIED) [Concomitant]
     Route: 065

REACTIONS (1)
  - CARDIAC ARREST [None]
